FAERS Safety Report 8818197 (Version 1)
Quarter: 2012Q4

REPORT INFORMATION
  Report Type: 
  Country: US (occurrence: US)
  Receive Date: 20121001
  Receipt Date: 20121001
  Transmission Date: 20130627
  Serious: No
  Sender: FDA-Public Use
  Company Number: US-PFIZER INC-2012241292

PATIENT
  Sex: Male

DRUGS (3)
  1. LYRICA [Suspect]
     Indication: INSOMNIA
     Dosage: UNK
  2. LYRICA [Suspect]
     Indication: HOT FLUSH
  3. LYRICA [Suspect]
     Indication: PERIPHERAL COLDNESS

REACTIONS (9)
  - Drug ineffective [Unknown]
  - Dizziness [Unknown]
  - Anxiety [Unknown]
  - Hyperhidrosis [Unknown]
  - Chest discomfort [Unknown]
  - Vision blurred [Unknown]
  - Photosensitivity reaction [Unknown]
  - Insomnia [Unknown]
  - Hot flush [Unknown]
